FAERS Safety Report 11084320 (Version 2)
Quarter: 2015Q2

REPORT INFORMATION
  Report Type: Spontaneous
  Country: US (occurrence: US)
  Receive Date: 20150502
  Receipt Date: 20150525
  Transmission Date: 20150821
  Serious: No
  Sender: FDA-Public Use
  Company Number: US-JNJFOC-20141217703

PATIENT
  Age: 66 Year
  Sex: Female

DRUGS (6)
  1. OLYSIO [Suspect]
     Active Substance: SIMEPREVIR
     Indication: HEPATITIS C
     Route: 065
  2. SOFOSBUVIR [Suspect]
     Active Substance: SOFOSBUVIR
     Indication: HEPATITIS C
     Route: 065
  3. VITAMINS [Concomitant]
     Active Substance: VITAMINS
     Route: 065
  4. TEMAZEPAM. [Concomitant]
     Active Substance: TEMAZEPAM
     Indication: PAIN
     Route: 065
  5. OXYCODONE [Concomitant]
     Active Substance: OXYCODONE
     Indication: PAIN
     Route: 065
  6. HERBAL MEDICATION NOS [Concomitant]
     Route: 065

REACTIONS (2)
  - Hepatitis C RNA increased [Unknown]
  - Off label use [Unknown]
